FAERS Safety Report 9717478 (Version 1)
Quarter: 2013Q4

REPORT INFORMATION
  Report Type: Spontaneous
  Country: US (occurrence: US)
  Receive Date: 20131127
  Receipt Date: 20131127
  Transmission Date: 20140711
  Serious: No
  Sender: FDA-Public Use
  Company Number: US-GILEAD-2009-0019788

PATIENT
  Sex: Female
  Weight: 103.42 kg

DRUGS (12)
  1. LETAIRIS [Suspect]
     Indication: PULMONARY ARTERIAL HYPERTENSION
     Route: 048
     Dates: start: 20080625
  2. AMLODIPINE [Concomitant]
  3. PLAVIX [Concomitant]
  4. ASPIRIN [Concomitant]
  5. PROTONIX [Concomitant]
  6. GABAPENTIN [Concomitant]
  7. LEXAPRO [Concomitant]
  8. PREDNISONE [Concomitant]
  9. HYDROCODONE APAP [Concomitant]
  10. POTASSIUM CHLORIDE [Concomitant]
  11. FOLIC ACID [Concomitant]
  12. CALCIUM +D [Concomitant]

REACTIONS (1)
  - Dizziness [Unknown]
